FAERS Safety Report 5249365-1 (Version None)
Quarter: 2007Q1

REPORT INFORMATION
  Report Type: 
  Country: None (occurrence: None)
  Receive Date: 20070228
  Receipt Date: 20060901
  Transmission Date: 20070707
  Serious: No
  Sender: FDA-Public Use
  Company Number: US-GLAXOSMITHKLINE-A0618938A

PATIENT
  Age: 22 Year
  Sex: Male

DRUGS (2)
  1. VALTREX [Suspect]
     Dosage: 1G PER DAY
     Route: 048
     Dates: start: 20060601, end: 20060801
  2. ATENOLOL [Concomitant]

REACTIONS (2)
  - ALOPECIA [None]
  - PHARMACEUTICAL PRODUCT COMPLAINT [None]
